FAERS Safety Report 6368322-5 (Version None)
Quarter: 2009Q3

REPORT INFORMATION
  Report Type: 
  Country: None (occurrence: None)
  Receive Date: 20090904
  Receipt Date: 20090821
  Transmission Date: 20100115
  Serious: Yes (Hospitalization)
  Sender: FDA-Public Use
  Company Number: 20090821CINRY1092

PATIENT
  Age: 39 Year
  Sex: Female

DRUGS (2)
  1. CINRYZE [Suspect]
     Indication: HEREDITARY ANGIOEDEMA
     Dosage: (1500 UNIT, TUESDAYS AND FRIDAYS), INTRAVENOUS
     Route: 042
     Dates: start: 20080701
  2. CINRYZE [Suspect]
     Indication: PROPHYLAXIS
     Dosage: (1500 UNIT, TUESDAYS AND FRIDAYS), INTRAVENOUS
     Route: 042
     Dates: start: 20080701

REACTIONS (4)
  - ANGIOEDEMA [None]
  - ASTHMA [None]
  - NASOPHARYNGITIS [None]
  - SINUS DISORDER [None]
